FAERS Safety Report 20212567 (Version 1)
Quarter: 2021Q4

REPORT INFORMATION
  Report Type: Spontaneous
  Country: US (occurrence: None)
  Receive Date: 20211221
  Receipt Date: 20211221
  Transmission Date: 20220303
  Serious: No
  Sender: FDA-Public Use
  Company Number: None

PATIENT
  Age: 75 Year
  Sex: Female
  Weight: 69.75 kg

DRUGS (1)
  1. VIGAMOX [Suspect]
     Active Substance: MOXIFLOXACIN HYDROCHLORIDE
     Indication: Cataract operation
     Dosage: FREQUENCY : EVERY 6 HOURS;?
     Route: 047
     Dates: start: 20211214, end: 20211220

REACTIONS (4)
  - Paraesthesia [None]
  - Burning sensation [None]
  - Pain [None]
  - Feeling of body temperature change [None]

NARRATIVE: CASE EVENT DATE: 20211221
